FAERS Safety Report 9982507 (Version 1)
Quarter: 2014Q1

REPORT INFORMATION
  Report Type: Report from Study
  Country: US (occurrence: US)
  Receive Date: 20140307
  Receipt Date: 20140307
  Transmission Date: 20141002
  Serious: No
  Sender: FDA-Public Use
  Company Number: US-ABBVIE-13P-163-1180805-00

PATIENT
  Age: 52 Year
  Sex: Female

DRUGS (7)
  1. HUMIRA [Suspect]
     Indication: RHEUMATOID ARTHRITIS
     Dates: start: 20131114
  2. LEVOTHYROXINE [Concomitant]
     Indication: HYPOTHYROIDISM
  3. FLUOXETINE HCL [Concomitant]
     Indication: POST-TRAUMATIC STRESS DISORDER
  4. FLUOXETINE HCL [Concomitant]
     Indication: DEPRESSION
  5. LISINOPRIL [Concomitant]
     Indication: HYPERTENSION
     Dosage: 20-25 MG DAILY
  6. GENERIC ADDERALL ER [Concomitant]
     Indication: ATTENTION DEFICIT/HYPERACTIVITY DISORDER
     Dosage: 30 MG MONDAY-FRIDAY
  7. GENERIC BENADRYL [Concomitant]
     Indication: URTICARIA
     Dosage: DAILY

REACTIONS (5)
  - Dermatitis [Unknown]
  - Injection site pain [Recovered/Resolved]
  - Drug ineffective [Unknown]
  - Arthralgia [Unknown]
  - Oedema peripheral [Unknown]
